FAERS Safety Report 9139704 (Version 1)
Quarter: 2013Q1

REPORT INFORMATION
  Report Type: Spontaneous
  Country: AU (occurrence: AU)
  Receive Date: 20130305
  Receipt Date: 20130305
  Transmission Date: 20140127
  Serious: Yes (Other)
  Sender: FDA-Public Use
  Company Number: AU-JNJFOC-20130215548

PATIENT
  Age: 66 Year
  Sex: Female

DRUGS (9)
  1. REGAINE [Suspect]
     Route: 061
  2. REGAINE [Suspect]
     Indication: ALOPECIA
     Dosage: ABOUT 7 OR 8 APPLICATIONS EVERY NIGHT AND SOME MORNINGS
     Route: 061
     Dates: start: 20130218, end: 20130222
  3. SYMBICORT [Concomitant]
     Route: 065
  4. OESTROGEN [Concomitant]
     Route: 065
  5. GLUCOSAMINE [Concomitant]
     Route: 065
  6. COD LIVER [Concomitant]
     Route: 065
  7. MULTIVITAMINS [Concomitant]
     Indication: PRODUCT USED FOR UNKNOWN INDICATION
     Route: 065
  8. MULTIVITAMINS [Concomitant]
     Indication: SKIN DISORDER
     Route: 065
  9. MULTIVITAMINS [Concomitant]
     Indication: HAIR GROWTH ABNORMAL
     Route: 065

REACTIONS (7)
  - Asthma [Recovered/Resolved]
  - Nausea [Recovered/Resolved]
  - Dizziness [Recovered/Resolved]
  - Application site reaction [Unknown]
  - Rash [Unknown]
  - Wrong drug administered [Unknown]
  - Incorrect dose administered [Unknown]
